FAERS Safety Report 7731116-X (Version None)
Quarter: 2011Q3

REPORT INFORMATION
  Report Type: 
  Country: None (occurrence: None)
  Receive Date: 20110906
  Receipt Date: 20110906
  Transmission Date: 20111222
  Serious: Yes (Life-Threatening, Disabling, Other)
  Sender: FDA-Public Use
  Company Number: None

PATIENT
  Age: 48 Year
  Sex: Female
  Weight: 58.967 kg

DRUGS (1)
  1. COLCRYS [Suspect]
     Indication: FAMILIAL MEDITERRANEAN FEVER
     Dosage: 1 TABLET
     Route: 048
     Dates: start: 20110624, end: 20110724

REACTIONS (3)
  - DISEASE RECURRENCE [None]
  - FAMILIAL MEDITERRANEAN FEVER [None]
  - PRODUCT SUBSTITUTION ISSUE [None]
